FAERS Safety Report 4472465-0 (Version None)
Quarter: 2004Q4

REPORT INFORMATION
  Report Type: 
  Country: None (occurrence: None)
  Receive Date: 20041007
  Receipt Date: 20040928
  Transmission Date: 20050328
  Serious: Yes (Hospitalization, Disabling)
  Sender: FDA-Public Use
  Company Number: 2004236174US

PATIENT
  Age: 76 Year
  Sex: Female
  Weight: 79.4 kg

DRUGS (13)
  1. XALATAN [Suspect]
     Indication: GLAUCOMA
     Dates: start: 19990101
  2. GLUCOPHAGE [Concomitant]
  3. INSULIN [Concomitant]
  4. MAXZIDE [Concomitant]
  5. TOPROL-XL [Concomitant]
  6. BLYBURIDE (GLIBENCLAMIDE) [Concomitant]
  7. LIPITOR [Concomitant]
  8. ASPIRIN [Concomitant]
  9. CENTRUM (VITAMIN NOS) [Concomitant]
  10. CALTRATE + D [Concomitant]
  11. VITAMIN C [Concomitant]
  12. VITAMIN E [Concomitant]
  13. ANTIOXIDANTS [Concomitant]

REACTIONS (9)
  - BLINDNESS [None]
  - HEADACHE [None]
  - INTRAOCULAR PRESSURE INCREASED [None]
  - RED BLOOD CELL SEDIMENTATION RATE INCREASED [None]
  - RETINAL DISORDER [None]
  - STRESS SYMPTOMS [None]
  - TEMPORAL ARTERITIS [None]
  - VISION BLURRED [None]
  - VISUAL FIELD DEFECT [None]
